FAERS Safety Report 5473176-5 (Version None)
Quarter: 2007Q4

REPORT INFORMATION
  Report Type: 
  Country: None (occurrence: None)
  Receive Date: 20071001
  Receipt Date: 20070918
  Transmission Date: 20080405
  Serious: Yes (Life-Threatening, Hospitalization)
  Sender: FDA-Public Use
  Company Number: JP-MERCK-0708USA00704

PATIENT
  Age: 64 Year
  Sex: Female
  Weight: 44 kg

DRUGS (9)
  1. COZAAR [Suspect]
     Route: 048
     Dates: end: 20070719
  2. [THERAPY UNSPECIFIED] [Concomitant]
     Route: 042
  3. CILOSTAZOL [Suspect]
     Route: 048
     Dates: end: 20070719
  4. ADALAT [Suspect]
     Route: 048
     Dates: end: 20070719
  5. RENAGEL [Suspect]
     Route: 048
     Dates: end: 20070719
  6. CALTAN [Suspect]
     Route: 048
     Dates: end: 20070719
  7. PREDONINE [Concomitant]
     Route: 048
     Dates: start: 20070720, end: 20070722
  8. PREDONINE [Concomitant]
     Route: 048
     Dates: end: 20070719
  9. PREDONINE [Concomitant]
     Route: 048
     Dates: end: 20070719

REACTIONS (4)
  - BLOOD CREATINE PHOSPHOKINASE INCREASED [None]
  - HEPATIC FUNCTION ABNORMAL [None]
  - PERICARDITIS [None]
  - PLATELET COUNT DECREASED [None]
